FAERS Safety Report 11119633 (Version 3)
Quarter: 2016Q1

REPORT INFORMATION
  Report Type: Spontaneous
  Country: US (occurrence: US)
  Receive Date: 20150518
  Receipt Date: 20160325
  Transmission Date: 20160525
  Serious: Yes (Death, Hospitalization, Other)
  Sender: FDA-Public Use
  Company Number: US-PFIZER INC-2015165337

PATIENT
  Age: 67 Year
  Sex: Female

DRUGS (4)
  1. PREMPRO [Suspect]
     Active Substance: ESTROGENS, CONJUGATED\MEDROXYPROGESTERONE ACETATE
     Indication: HORMONE REPLACEMENT THERAPY
     Dosage: 0.45/1.5 MG, 1X/DAY
     Route: 048
     Dates: start: 20050711
  2. PREMPRO [Suspect]
     Active Substance: ESTROGENS, CONJUGATED\MEDROXYPROGESTERONE ACETATE
     Indication: MENOPAUSAL SYMPTOMS
     Dosage: UNK
     Route: 048
  3. PREMPRO [Suspect]
     Active Substance: ESTROGENS, CONJUGATED\MEDROXYPROGESTERONE ACETATE
     Indication: HYPERTENSION
     Dosage: 0.625/2.5 MG, 1X/DAY
     Route: 048
     Dates: start: 20001030
  4. PREMPRO [Suspect]
     Active Substance: ESTROGENS, CONJUGATED\MEDROXYPROGESTERONE ACETATE
     Dosage: 0.3 MG TO 1.5 MG ONE TABLET, DAILY
     Route: 048
     Dates: start: 20120824

REACTIONS (2)
  - Endometrial cancer [Fatal]
  - Metastases to lung [Unknown]

NARRATIVE: CASE EVENT DATE: 201208
